FAERS Safety Report 20719788 (Version 11)
Quarter: 2023Q2

REPORT INFORMATION
  Report Type: Spontaneous
  Country: GB (occurrence: GB)
  Receive Date: 20220418
  Receipt Date: 20230410
  Transmission Date: 20230722
  Serious: Yes (Other)
  Sender: FDA-Public Use
  Company Number: GB-MYLANLABS-2020M1003870

PATIENT
  Age: 64 Year
  Sex: Male
  Weight: 80 kg

DRUGS (5)
  1. CLOZARIL [Suspect]
     Active Substance: CLOZAPINE
     Indication: Schizophrenia
     Dosage: 200 MILLIGRAM
     Route: 048
     Dates: start: 20150923, end: 202111
  2. CLOZARIL [Suspect]
     Active Substance: CLOZAPINE
     Dosage: UNK
     Route: 048
     Dates: start: 20220225
  3. CLOZARIL [Suspect]
     Active Substance: CLOZAPINE
     Dosage: UNK, TITRATED FROM 12.5MG
     Route: 048
     Dates: start: 20220103
  4. ZUCLOPENTHIXOL [Suspect]
     Active Substance: ZUCLOPENTHIXOL
     Indication: Schizophrenia
     Dosage: UNK, QW, 100- 500MG
     Route: 030
     Dates: start: 202111, end: 202202
  5. LITHIUM [Concomitant]
     Active Substance: LITHIUM
     Dosage: UNK, QD, 400- 800MG
     Route: 048
     Dates: start: 202201

REACTIONS (5)
  - Thrombocytopenia [Not Recovered/Not Resolved]
  - Malaise [Unknown]
  - White blood cell count decreased [Recovering/Resolving]
  - Therapy interrupted [Unknown]
  - Off label use [Unknown]

NARRATIVE: CASE EVENT DATE: 20200108
